FAERS Safety Report 9858312 (Version 3)
Quarter: 2014Q2

REPORT INFORMATION
  Report Type: Spontaneous
  Country: DE (occurrence: DE)
  Receive Date: 20140131
  Receipt Date: 20140408
  Transmission Date: 20141212
  Serious: Yes (Life-Threatening)
  Sender: FDA-Public Use
  Company Number: DE-ELI_LILLY_AND_COMPANY-DE201401009611

PATIENT
  Age: 55 Year
  Sex: Male

DRUGS (5)
  1. PRASUGREL HYDROCHLORIDE [Suspect]
     Indication: PERCUTANEOUS CORONARY INTERVENTION
     Dosage: 60 MG, SINGLE
     Route: 048
  2. PRASUGREL HYDROCHLORIDE [Suspect]
     Dosage: 10 MG, QD
     Route: 048
  3. ASPIRIN [Suspect]
     Indication: PERCUTANEOUS CORONARY INTERVENTION
     Dosage: 100 MG, QD
  4. TENECTEPLASE [Concomitant]
     Indication: THROMBOSIS PROPHYLAXIS
     Dosage: 10000 DF, SINGLE
     Route: 065
  5. HEPARIN [Concomitant]
     Indication: PERCUTANEOUS CORONARY INTERVENTION
     Dosage: 6000 DF, SINGLE
     Route: 065

REACTIONS (2)
  - Oesophageal compression [Recovered/Resolved]
  - Haemorrhagic thyroid cyst [Recovered/Resolved]
